FAERS Safety Report 21128351 (Version 2)
Quarter: 2022Q4

REPORT INFORMATION
  Report Type: Spontaneous
  Country: JP (occurrence: JP)
  Receive Date: 20220725
  Receipt Date: 20221009
  Transmission Date: 20230113
  Serious: Yes (Hospitalization, Other)
  Sender: FDA-Public Use
  Company Number: JP-BAXTER-2021BAX041262

PATIENT
  Age: 62 Year
  Sex: Female
  Weight: 48.6 kg

DRUGS (8)
  1. DOXORUBICIN [Suspect]
     Active Substance: DOXORUBICIN
     Indication: Ovarian cancer recurrent
     Dosage: 70 MG (1 IN 0.33 D), 3X A DAY, SOLUTION FOR INFUSION
     Route: 042
     Dates: start: 20210826, end: 20211029
  2. LUMIGAN [Concomitant]
     Active Substance: BIMATOPROST
     Dosage: UNK, PRN
     Route: 047
  3. OLMESARTAN MEDOXOMIL [Concomitant]
     Active Substance: OLMESARTAN MEDOXOMIL
     Dosage: 20 MG (1 IN 1 D)
     Route: 048
  4. AMLODIPINE [Concomitant]
     Active Substance: AMLODIPINE BESYLATE
     Dosage: 5 MG, QD (1 IN 1 D)
     Route: 048
  5. MAGNESIUM OXIDE [Concomitant]
     Active Substance: MAGNESIUM OXIDE
     Dosage: 250 MG, QD (1 IN 1 D)
     Route: 048
     Dates: start: 20200625
  6. AZARGA [Concomitant]
     Active Substance: BRINZOLAMIDE\TIMOLOL MALEATE
     Dosage: UNK, PM
     Route: 047
  7. DIQUAFOSOL TETRASODIUM [Concomitant]
     Active Substance: DIQUAFOSOL TETRASODIUM
     Dosage: UNK, PRN
     Route: 047
  8. CALONAL [Concomitant]
     Active Substance: ACETAMINOPHEN
     Dosage: 200 MG, QD (1 IN 1 D)
     Route: 048

REACTIONS (3)
  - Pulmonary toxicity [Unknown]
  - Interstitial lung disease [Recovering/Resolving]
  - Erythema multiforme [Recovered/Resolved]

NARRATIVE: CASE EVENT DATE: 20211029
